FAERS Safety Report 8852792 (Version 3)
Quarter: 2013Q3

REPORT INFORMATION
  Report Type: Report from Study
  Country: JP (occurrence: JP)
  Receive Date: 20121022
  Receipt Date: 20130813
  Transmission Date: 20140515
  Serious: Yes (Death, Hospitalization)
  Sender: FDA-Public Use
  Company Number: JP-CELGENEUS-087-50794-12102542

PATIENT
  Age: 65 Year
  Sex: Male
  Weight: 58 kg

DRUGS (12)
  1. VIDAZA [Suspect]
     Indication: MYELODYSPLASTIC SYNDROME
     Dosage: 75 MILLIGRAM/SQ. METER
     Route: 058
     Dates: start: 20120312, end: 20120318
  2. VIDAZA [Suspect]
     Dosage: 37.5 MILLIGRAM/SQ. METER
     Route: 058
     Dates: start: 20120423, end: 20120502
  3. VIDAZA [Suspect]
     Dosage: 37.5 MILLIGRAM/SQ. METER
     Route: 058
     Dates: start: 20120528, end: 20120605
  4. VIDAZA [Suspect]
     Dosage: 37.5 MILLIGRAM/SQ. METER
     Route: 058
     Dates: start: 20120702, end: 20120710
  5. VIDAZA [Suspect]
     Route: 058
     Dates: end: 20121010
  6. AUGMENTIN [Concomitant]
     Indication: PRODUCT USED FOR UNKNOWN INDICATION
     Route: 065
     Dates: start: 20120711, end: 20120718
  7. CEFZON [Concomitant]
     Indication: PRODUCT USED FOR UNKNOWN INDICATION
     Route: 065
     Dates: start: 20120723, end: 20120731
  8. MAXIPIME [Concomitant]
     Indication: PRODUCT USED FOR UNKNOWN INDICATION
     Route: 065
     Dates: start: 20120730, end: 20120810
  9. VFEND [Concomitant]
     Indication: PRODUCT USED FOR UNKNOWN INDICATION
     Route: 065
     Dates: start: 20120816
  10. FUNGUARD [Concomitant]
     Indication: PRODUCT USED FOR UNKNOWN INDICATION
     Route: 065
     Dates: start: 20120824, end: 20120928
  11. NEUTROGIN [Concomitant]
     Indication: PRODUCT USED FOR UNKNOWN INDICATION
     Route: 065
     Dates: start: 20120807, end: 20120913
  12. GLOBULIN [Concomitant]
     Indication: PRODUCT USED FOR UNKNOWN INDICATION
     Route: 065
     Dates: start: 20120823, end: 20120825

REACTIONS (2)
  - Pulmonary mycosis [Fatal]
  - Febrile neutropenia [Recovering/Resolving]
